FAERS Safety Report 9778300 (Version 2)
Quarter: 2013Q4

REPORT INFORMATION
  Report Type: Report from Study
  Country: FR (occurrence: FR)
  Receive Date: 20131223
  Receipt Date: 20131223
  Transmission Date: 20140711
  Serious: Yes (Life-Threatening, Hospitalization)
  Sender: FDA-Public Use
  Company Number: FR-ELI_LILLY_AND_COMPANY-FR201307006765

PATIENT
  Age: 77 Year
  Sex: Male
  Weight: 68 kg

DRUGS (7)
  1. PEMETREXED [Suspect]
     Indication: LUNG NEOPLASM MALIGNANT
     Dosage: 500 MG/M2, EVERY 21 DAYS
     Route: 042
     Dates: start: 20120907, end: 20130329
  2. FOLIC ACID [Concomitant]
     Indication: PREMEDICATION
     Dosage: UNK
     Dates: start: 20120831
  3. VITAMIN B12 [Concomitant]
     Indication: PREMEDICATION
     Dosage: UNK
     Dates: start: 20120831
  4. DEXAMETHASONE [Concomitant]
     Indication: PREMEDICATION
     Dosage: UNK
     Dates: start: 20120907
  5. NEULASTA [Concomitant]
     Indication: PROPHYLAXIS
     Dosage: UNK
     Dates: start: 20120907
  6. EMEND [Concomitant]
     Indication: PREMEDICATION
     Dosage: UNK
     Dates: start: 20120608
  7. DAFALGAN [Concomitant]
     Dosage: UNK
     Dates: start: 20120717

REACTIONS (2)
  - Anaemia [Recovered/Resolved]
  - Thrombocytopenia [Recovered/Resolved]
